FAERS Safety Report 5800471-X (Version None)
Quarter: 2008Q3

REPORT INFORMATION
  Report Type: 
  Country: None (occurrence: None)
  Receive Date: 20080703
  Receipt Date: 20080626
  Transmission Date: 20090109
  Serious: Yes (Hospitalization, Other)
  Sender: FDA-Public Use
  Company Number: A0733208A

PATIENT
  Age: 66 Year
  Sex: Male
  Weight: 75.5 kg

DRUGS (9)
  1. EPZICOM [Suspect]
     Indication: DRUG USE FOR UNKNOWN INDICATION
     Route: 048
     Dates: start: 20071115
  2. LEXIVA [Suspect]
     Indication: DRUG USE FOR UNKNOWN INDICATION
     Dosage: 700MG TWICE PER DAY
     Route: 048
     Dates: start: 20071115
  3. NORVASC [Concomitant]
     Dosage: 100MG TWICE PER DAY
     Route: 048
     Dates: start: 20071115
  4. K-DUR [Concomitant]
     Dosage: 20MEQ PER DAY
     Dates: start: 20050101
  5. LASIX [Concomitant]
     Dates: start: 20050101
  6. LIPITOR [Concomitant]
     Dates: start: 19970101
  7. AVANDIA [Concomitant]
     Dosage: 4MG PER DAY
     Route: 048
     Dates: start: 19970101
  8. BIDIL [Concomitant]
     Dosage: 10MG TWICE PER DAY
     Dates: start: 20080401
  9. ACIPHEX [Concomitant]
     Dates: start: 20050101

REACTIONS (1)
  - PAIN [None]
